FAERS Safety Report 10199872 (Version 1)
Quarter: 2014Q2

REPORT INFORMATION
  Report Type: Spontaneous
  Country: US (occurrence: US)
  Receive Date: 20140527
  Receipt Date: 20140527
  Transmission Date: 20141212
  Serious: No
  Sender: FDA-Public Use
  Company Number: US-NOVEN-14US009023

PATIENT
  Age: 8 Year
  Sex: Male
  Weight: 26.76 kg

DRUGS (4)
  1. DAYTRANA [Suspect]
     Indication: ATTENTION DEFICIT/HYPERACTIVITY DISORDER
     Dosage: 10 MG, QD ON WEEKDAYS
     Route: 062
     Dates: start: 201402
  2. DAYTRANA [Suspect]
     Dosage: 20 MG, QD ON WEEKDAYS
     Route: 062
     Dates: start: 2014, end: 201402
  3. DAYTRANA [Suspect]
     Dosage: 10 MG, UNK
     Route: 062
     Dates: start: 20140106, end: 2014
  4. MELATONIN [Concomitant]
     Indication: INSOMNIA
     Dosage: Q HS
     Route: 048

REACTIONS (2)
  - Somnolence [Not Recovered/Not Resolved]
  - Decreased appetite [Not Recovered/Not Resolved]
